FAERS Safety Report 13034882 (Version 2)
Quarter: 2017Q1

REPORT INFORMATION
  Report Type: Report from Study
  Country: US (occurrence: US)
  Receive Date: 20161216
  Receipt Date: 20170202
  Transmission Date: 20170428
  Serious: Yes (Hospitalization, Other)
  Sender: FDA-Public Use
  Company Number: US-AMGEN-USASL2016051908

PATIENT
  Age: 61 Year
  Sex: Female
  Weight: 69.9 kg

DRUGS (19)
  1. REPATHA [Suspect]
     Active Substance: EVOLOCUMAB
     Indication: HYPERCHOLESTEROLAEMIA
     Dosage: 140 MG/ML, Q2WK
     Route: 058
     Dates: start: 201512
  2. CLOPIDOGREL [Concomitant]
     Active Substance: CLOPIDOGREL BISULFATE
     Dosage: 75 MG (1 TABLET), QD
     Route: 048
  3. ROXICODONE [Concomitant]
     Active Substance: OXYCODONE HYDROCHLORIDE
     Dosage: UNK (5-10) MG, Q4H AS NEEDED
  4. PATADAY [Concomitant]
     Active Substance: OLOPATADINE HYDROCHLORIDE
     Dosage: 0.2 % (1 DROP, BOTH EYES), QD AS NEEDED
  5. PROVENTIL HFA [Concomitant]
     Active Substance: ALBUTEROL SULFATE
     Indication: WHEEZING
     Dosage: 90 MUG/INH, QID (AS NEEDED)
  6. PHENYTEK [Concomitant]
     Active Substance: PHENYTOIN SODIUM
     Dosage: 300 MG, UNK (AT BEDTIME)
     Route: 048
  7. ALLEGRA [Concomitant]
     Active Substance: FEXOFENADINE HYDROCHLORIDE
     Dosage: 180 MG, QD
     Route: 048
  8. GABAPENTIN. [Concomitant]
     Active Substance: GABAPENTIN
     Dosage: 300 MG (1 CAPSULE), TID
     Route: 048
  9. SYNTHROID [Concomitant]
     Active Substance: LEVOTHYROXINE SODIUM
     Dosage: 100 MUG (0.1MG), 1 TABLET, QD
     Route: 048
  10. ZANTAC [Concomitant]
     Active Substance: RANITIDINE HYDROCHLORIDE
     Dosage: 75 MG (1 TABLET), BID
     Route: 048
  11. METOPROLOL SUCCINATE. [Concomitant]
     Active Substance: METOPROLOL SUCCINATE
     Dosage: 25 MG, TID
     Route: 048
  12. PATANOL [Concomitant]
     Active Substance: OLOPATADINE HYDROCHLORIDE
     Dosage: 0.1 %, (1 DROPS IN BOTH EYES), BID
     Route: 047
  13. NITROSTAT [Concomitant]
     Active Substance: NITROGLYCERIN
     Indication: CHEST PAIN
     Dosage: UNK UNK 1 TABLET, Q5MIN, AS NEEDED
     Route: 060
  14. ANTIVERT [Concomitant]
     Active Substance: MECLIZINE HYDROCHLORIDE
     Dosage: 12.5 MG, TID
     Route: 048
  15. FLONASE [Concomitant]
     Active Substance: FLUTICASONE PROPIONATE
     Dosage: 50 MUG/INH, 2 SPRAYS, TID
     Route: 045
  16. LISINOPRIL AND HYDROCHLOROTHIAZIDE [Concomitant]
     Active Substance: HYDROCHLOROTHIAZIDE\LISINOPRIL
     Dosage: 12.5 MG-10 MG (1 TABLET), QD
     Route: 048
  17. COLCRYS [Concomitant]
     Active Substance: COLCHICINE
     Dosage: 0.6 MG (0.5 TAB), QD
     Route: 048
  18. PROTONIX [Concomitant]
     Active Substance: PANTOPRAZOLE SODIUM
     Dosage: 40 MG (2 TABLETS), BID
     Route: 048
  19. ACETAMINOPHEN. [Concomitant]
     Active Substance: ACETAMINOPHEN
     Dosage: 325 MG (650 MG), Q4H
     Route: 048

REACTIONS (20)
  - Loss of consciousness [Unknown]
  - Hypertension [Unknown]
  - Injection site pain [Unknown]
  - Nausea [Not Recovered/Not Resolved]
  - Headache [Not Recovered/Not Resolved]
  - Nasopharyngitis [Unknown]
  - Syncope [Unknown]
  - Cough [Unknown]
  - Fall [Unknown]
  - Traumatic intracranial haemorrhage [Unknown]
  - Vomiting [Not Recovered/Not Resolved]
  - Haematoma [Not Recovered/Not Resolved]
  - Pain in jaw [Unknown]
  - Gait disturbance [Unknown]
  - Procedural pain [Unknown]
  - Injection site mass [Unknown]
  - Stent placement [Unknown]
  - Subarachnoid haemorrhage [Unknown]
  - Dizziness [Unknown]
  - Head injury [Unknown]

NARRATIVE: CASE EVENT DATE: 2016
